FAERS Safety Report 5091893-6 (Version None)
Quarter: 2006Q3

REPORT INFORMATION
  Report Type: 
  Country: None (occurrence: None)
  Receive Date: 20060825
  Receipt Date: 20060816
  Transmission Date: 20061208
  Serious: Yes (Disabling)
  Sender: FDA-Public Use
  Company Number: 2006097172

PATIENT
  Age: 74 Year
  Sex: Female

DRUGS (3)
  1. LOPID [Suspect]
     Dosage: 1200 MG (600 MG, 2 IN 1 D)
  2. ARTHROTEC [Concomitant]
  3. CALCHICHEW (CALCIUM CARBONATE) [Concomitant]

REACTIONS (3)
  - GAIT DISTURBANCE [None]
  - TENDON DISORDER [None]
  - TENDON RUPTURE [None]
